FAERS Safety Report 17180507 (Version 1)
Quarter: 2019Q4

REPORT INFORMATION
  Report Type: Report from Study
  Country: IT (occurrence: IT)
  Receive Date: 20191219
  Receipt Date: 20191219
  Transmission Date: 20200122
  Serious: Yes (Other)
  Sender: FDA-Public Use
  Company Number: IT-MYLANLABS-2019M1124074

PATIENT
  Age: 29 Year
  Sex: Female

DRUGS (1)
  1. DIAZEPAM. [Suspect]
     Active Substance: DIAZEPAM
     Indication: PANIC ATTACK
     Dosage: 20 GTT DROPS, TOTAL
     Route: 048
     Dates: start: 20190605, end: 20190605

REACTIONS (4)
  - Sedation [Recovering/Resolving]
  - Bradyphrenia [Recovering/Resolving]
  - Visual acuity reduced [Recovering/Resolving]
  - Syncope [Recovering/Resolving]

NARRATIVE: CASE EVENT DATE: 20190605
